FAERS Safety Report 8058270-7 (Version None)
Quarter: 2012Q1

REPORT INFORMATION
  Report Type: 
  Country: None (occurrence: None)
  Receive Date: 20120111
  Receipt Date: 20111228
  Transmission Date: 20120608
  Serious: Yes (Hospitalization, Other)
  Sender: FDA-Public Use
  Company Number: CIP11000510

PATIENT
  Age: 63 Year
  Sex: Female
  Weight: 68.2 kg

DRUGS (43)
  1. ACTONEL [Suspect]
     Indication: OSTEOPENIA
     Dosage: 35 MG ONCE WEEKLY, ORAL
     Route: 048
     Dates: start: 20021014
  2. ACTONEL [Suspect]
     Indication: POSTMENOPAUSE
     Dosage: 35 MG ONCE WEEKLY, ORAL
     Route: 048
     Dates: start: 20021014
  3. FISH OIL (FISH OIL) [Concomitant]
  4. CALCIUM CARBONATE [Concomitant]
  5. BEXTRA /01400702/ (PARECOXIB SODIUM) [Concomitant]
  6. TAZORAC [Concomitant]
  7. CLOBEX /00337102/ (CLOBETASOL PROPIONATE) [Concomitant]
  8. OXYCODONE AND ACETAMINOPHEN [Concomitant]
  9. ERGOCALCIFEROL [Concomitant]
  10. ANTIVERT /00072802/ (MECLOZINE HYDROCHLORIDE) [Concomitant]
  11. MULTIVIT (VITAMINS NOS) [Concomitant]
  12. FLEXERIL /00428402/ (CYCLOBENZAPRINE HYDROCHLORIDE) [Concomitant]
  13. MYTUSSIN AC (CODEINE PHOSPHATE, GUAIFENESIN) [Concomitant]
  14. OMNICEF /00497602/ (CEFOTAXIME SODIUM) [Concomitant]
  15. MOBIC [Concomitant]
  16. AMOXICILLIN [Concomitant]
  17. LEVAQUIN [Concomitant]
  18. NEXIUM [Concomitant]
  19. ALEVE [Concomitant]
  20. COLACE (DOCUSATE SODIUM) [Concomitant]
  21. PREMPRO (ESTROGENS CONJUGATED, MEDROXYPROGSTERONE ACETATE) [Concomitant]
  22. CARISOPRODOL [Concomitant]
  23. LEXAPRO [Concomitant]
  24. DAPSONE [Concomitant]
  25. FOLIC ACID [Concomitant]
  26. PERCOCET /00867901/ (OXYCODONE HYDROCHLORIDE, PARCETAMOL) [Concomitant]
  27. SCOPOLAMINE /00008701/ (HYOSCINE) [Concomitant]
  28. IRON (IRON) [Concomitant]
  29. PROCRIT [Concomitant]
  30. INTERFERON [Concomitant]
  31. TYLENOL /0020001/  (PARACETAMOL) [Concomitant]
  32. VASOTEC /00574902/ (ENALAPRIL MALEATE) [Concomitant]
  33. PROTOPIC [Concomitant]
  34. CIPROFLOXACIN [Concomitant]
  35. ADVAIR HFA [Concomitant]
  36. TOPICORT /00370301/ (DESOXIMETASONE) [Concomitant]
  37. RIBASPHERE [Concomitant]
  38. NABUMETONE [Concomitant]
  39. PROZAC [Concomitant]
  40. FAMVIR /01226201/ (FAMCICLOVIR) [Concomitant]
  41. TACLONEX (BETAMETHASONE DIPROPIONATE, CALCIPOTRIOL) [Concomitant]
  42. HALOBETASOL PROPIONATE [Concomitant]
  43. DOVONEX [Concomitant]

REACTIONS (13)
  - PAIN IN EXTREMITY [None]
  - DEVICE DISLOCATION [None]
  - FALL [None]
  - FRACTURE DISPLACEMENT [None]
  - TREATMENT NONCOMPLIANCE [None]
  - FEMUR FRACTURE [None]
  - LIMB ASYMMETRY [None]
  - FRACTURE MALUNION [None]
  - MUSCULAR WEAKNESS [None]
  - OEDEMA PERIPHERAL [None]
  - GAIT DISTURBANCE [None]
  - PATHOLOGICAL FRACTURE [None]
  - ABASIA [None]
